FAERS Safety Report 5792873-5 (Version None)
Quarter: 2008Q2

REPORT INFORMATION
  Report Type: 
  Country: None (occurrence: None)
  Receive Date: 20080624
  Receipt Date: 20080613
  Transmission Date: 20081010
  Serious: Yes (Death)
  Sender: FDA-Public Use
  Company Number: 2008S1009406

PATIENT
  Age: 44 Year
  Sex: Female
  Weight: 90.7194 kg

DRUGS (19)
  1. CHANTIX [Suspect]
     Indication: SMOKING CESSATION THERAPY
     Dosage: 0.5 MG; DAILY; ORAL
     Route: 048
     Dates: start: 20070802, end: 20070811
  2. PREVACID [Suspect]
     Indication: NAUSEA
     Dosage: 30 MG; DAILY; ORAL
     Route: 048
     Dates: start: 20060101
  3. ACETAMINOPHEN W/HYDROCODONE BITARTRATE (750 MG) [Suspect]
     Indication: PAIN
     Dosage: 750 MG; AS NEEDED; ORAL; 7.5 MG; AS NEEDED; ORAL
     Route: 048
     Dates: end: 19880101
  4. ACETAMINOPHEN W/HYDROCODONE BITARTRATE (750 MG) [Suspect]
     Indication: PAIN
     Dosage: 750 MG; AS NEEDED; ORAL; 7.5 MG; AS NEEDED; ORAL
     Route: 048
     Dates: end: 19880101
  5. TEMAZEPAM [Suspect]
     Indication: INSOMNIA
     Dosage: 30 MG; AT BEDTIME; ORAL
     Route: 048
  6. TEMAZEPAM [Suspect]
     Indication: POST-TRAUMATIC STRESS DISORDER
     Dosage: 30 MG; AT BEDTIME; ORAL
     Route: 048
  7. ZOLPIDEM TARTRATE [Suspect]
     Indication: INSOMNIA
     Dosage: 10 MG; AT BEDTIME; ORAL
     Route: 048
  8. ZOLPIDEM TARTRATE [Suspect]
     Indication: POST-TRAUMATIC STRESS DISORDER
     Dosage: 10 MG; AT BEDTIME; ORAL
     Route: 048
  9. MIRTAZAPINE [Suspect]
     Indication: DEPRESSION
     Dosage: 30 MG; EVERY MORNING; ORAL, 60 MG; AT BEDTIME; ORAL
     Route: 048
  10. PROMETHAZINE [Suspect]
     Indication: NAUSEA
     Dosage: 25 MG; AS NEEDED; ORAL
     Route: 048
     Dates: start: 20060101
  11. ZOFRAN [Suspect]
     Indication: NAUSEA
     Dosage: 8 MG; 3 TIMES A DAY; ORAL
     Route: 048
     Dates: start: 20070201
  12. KLONOPIN (CON.) [Concomitant]
  13. NEURONTIN (CON.) [Concomitant]
  14. LITHIUM (CON.) [Concomitant]
  15. RISPERDAL (CON.) [Concomitant]
  16. TRAZODONE (CON.) [Concomitant]
  17. PROVIGIL (CON.) [Concomitant]
  18. METHOCARBAMOL (CON.) [Concomitant]
  19. ASTELIN /00085801/ (CON.) [Concomitant]

REACTIONS (6)
  - ACCIDENTAL OVERDOSE [None]
  - COLD SWEAT [None]
  - CYANOSIS [None]
  - DRUG INTERACTION [None]
  - DRUG TOXICITY [None]
  - PULMONARY CONGESTION [None]
